FAERS Safety Report 4566451-X (Version None)
Quarter: 2005Q1

REPORT INFORMATION
  Report Type: 
  Country: None (occurrence: None)
  Receive Date: 20050128
  Receipt Date: 20050118
  Transmission Date: 20050727
  Serious: Yes (Hospitalization)
  Sender: FDA-Public Use
  Company Number: 2005015146

PATIENT
  Age: 54 Year
  Sex: Male

DRUGS (1)
  1. XANAX [Suspect]
     Indication: ILL-DEFINED DISORDER
     Dosage: ORAL
     Route: 048

REACTIONS (2)
  - INTENTIONAL SELF-INJURY [None]
  - OVERDOSE [None]
